FAERS Safety Report 5158751-X (Version None)
Quarter: 2006Q4

REPORT INFORMATION
  Report Type: 
  Country: None (occurrence: None)
  Receive Date: 20061116
  Receipt Date: 20061101
  Transmission Date: 20070319
  Serious: Yes (Death, Life-Threatening)
  Sender: FDA-Public Use
  Company Number: 060406-0000321

PATIENT
  Age: 14 Day
  Sex: Female
  Weight: 1.02 kg

DRUGS (13)
  1. INDOCIN [Suspect]
     Indication: PATENT DUCTUS ARTERIOSUS
     Dosage: SEE IMAGE, IV
     Route: 042
     Dates: start: 19980301, end: 19980302
  2. GENTACIN [Concomitant]
  3. LASIX [Concomitant]
  4. BERACTANT [Concomitant]
  5. VICCILLIN [Concomitant]
  6. VENOGLOBULIN [Concomitant]
  7. AMIKACIN SULFATE [Concomitant]
  8. CALCIUM GLUCONATE [Concomitant]
  9. AMINOPHYLLINE [Concomitant]
  10. SODIUM BICARBONATE [Concomitant]
  11. VANCOMYCIN [Concomitant]
  12. RED BLOOD CELLS [Concomitant]
  13. PLATELETS [Concomitant]

REACTIONS (3)
  - NECROTISING COLITIS [None]
  - PERITONITIS [None]
  - SMALL INTESTINAL PERFORATION [None]
